FAERS Safety Report 9697013 (Version 2)
Quarter: 2013Q4

REPORT INFORMATION
  Report Type: Spontaneous
  Country: US (occurrence: US)
  Receive Date: 20131119
  Receipt Date: 20131225
  Transmission Date: 20140711
  Serious: Yes (Other)
  Sender: FDA-Public Use
  Company Number: US-AMGEN-USASP2013080433

PATIENT
  Age: 53 Year
  Sex: Female
  Weight: 93.88 kg

DRUGS (2)
  1. PROLIA [Suspect]
     Indication: OSTEOPOROSIS POSTMENOPAUSAL
     Dosage: 60 MG, UNK
     Route: 058
     Dates: start: 20130511
  2. PROLIA [Suspect]
     Indication: OSTEOPENIA

REACTIONS (1)
  - Loss of consciousness [Recovered/Resolved]
